FAERS Safety Report 15065128 (Version 1)
Quarter: 2018Q2

REPORT INFORMATION
  Report Type: Report from Study
  Country: US (occurrence: US)
  Receive Date: 20180626
  Receipt Date: 20180626
  Transmission Date: 20180711
  Serious: Yes (Death)
  Sender: FDA-Public Use
  Company Number: US-BLUE EARTH DIAGNOSTICS LIMITED-BED-000018-2018

PATIENT
  Age: 44 Year
  Sex: Female
  Weight: 84 kg

DRUGS (5)
  1. AXUMIN [Suspect]
     Active Substance: FLUCICLOVINE F-18
     Indication: POSITRON EMISSION TOMOGRAM
     Dosage: 331.3 MBQ, UNK
     Route: 065
     Dates: start: 20061117
  2. TEMODAR [Concomitant]
     Active Substance: TEMOZOLOMIDE
     Indication: GLIOMA
     Dosage: UNK
     Route: 065
     Dates: start: 2005, end: 2005
  3. AVASTIN [Concomitant]
     Active Substance: BEVACIZUMAB
     Indication: GLIOMA
     Dosage: UNK
     Route: 065
     Dates: start: 200605, end: 2006
  4. TEMODAR [Concomitant]
     Active Substance: TEMOZOLOMIDE
     Dosage: UNK
     Route: 065
     Dates: start: 2005, end: 2006
  5. PERIFOSINE [Concomitant]
     Active Substance: PERIFOSINE
     Indication: GLIOMA
     Dosage: UNK
     Route: 065
     Dates: start: 20061121

REACTIONS (2)
  - Condition aggravated [Fatal]
  - Glioblastoma [Fatal]

NARRATIVE: CASE EVENT DATE: 20061130
